FAERS Safety Report 4654356-5 (Version None)
Quarter: 2005Q2

REPORT INFORMATION
  Report Type: 
  Country: None (occurrence: None)
  Receive Date: 20050404
  Receipt Date: 20041227
  Transmission Date: 20051028
  Serious: No
  Sender: FDA-Public Use
  Company Number: USA041286982

PATIENT
  Sex: Female

DRUGS (7)
  1. CYMBALTA [Suspect]
     Indication: DIABETIC NEUROPATHY
     Dosage: 60 MG
     Dates: start: 20041201
  2. METFORMIN HCL [Concomitant]
  3. GLUCOTROL XL [Concomitant]
  4. DIOVAN [Concomitant]
  5. LIPITOR [Concomitant]
  6. TRIAMTERENE [Concomitant]
  7. NEURONTIN [Concomitant]

REACTIONS (3)
  - DIARRHOEA [None]
  - DRUG INEFFECTIVE [None]
  - FLATULENCE [None]
